FAERS Safety Report 23554043 (Version 2)
Quarter: 2024Q2

REPORT INFORMATION
  Report Type: Spontaneous
  Country: US (occurrence: US)
  Receive Date: 20240222
  Receipt Date: 20240411
  Transmission Date: 20240717
  Serious: No
  Sender: FDA-Public Use
  Company Number: US-MYLANLABS-2024M1010203

PATIENT
  Sex: Male
  Weight: 129.27 kg

DRUGS (2)
  1. WIXELA INHUB [Suspect]
     Active Substance: FLUTICASONE PROPIONATE\SALMETEROL XINAFOATE
     Indication: Chronic obstructive pulmonary disease
     Dosage: 100/50 MICROGRAM, BID (TWICE A DAY)
     Route: 055
     Dates: start: 20240129, end: 20240228
  2. WIXELA INHUB [Suspect]
     Active Substance: FLUTICASONE PROPIONATE\SALMETEROL XINAFOATE
     Indication: Influenza

REACTIONS (3)
  - Productive cough [Unknown]
  - Off label use [Unknown]
  - Therapeutic response unexpected [Unknown]
